FAERS Safety Report 4438334-7 (Version None)
Quarter: 2004Q3

REPORT INFORMATION
  Report Type: 
  Country: None (occurrence: None)
  Receive Date: 20040831
  Receipt Date: 20040720
  Transmission Date: 20050211
  Serious: No
  Sender: FDA-Public Use
  Company Number: US-GLAXOSMITHKLINE-A0519035A

PATIENT
  Age: 55 Year
  Sex: Female

DRUGS (3)
  1. WELLBUTRIN [Suspect]
     Indication: DEPRESSION
     Dosage: 300MG PER DAY
     Route: 048
     Dates: start: 20040705, end: 20040716
  2. ESTROGEN [Concomitant]
  3. CARTIA XT [Concomitant]

REACTIONS (5)
  - AGITATION [None]
  - CRYING [None]
  - DEPRESSIVE SYMPTOM [None]
  - STOOL ANALYSIS ABNORMAL [None]
  - VISION BLURRED [None]
